FAERS Safety Report 25707264 (Version 4)
Quarter: 2025Q3

REPORT INFORMATION
  Report Type: Spontaneous
  Country: CN (occurrence: CN)
  Receive Date: 20250820
  Receipt Date: 20250924
  Transmission Date: 20251021
  Serious: Yes (Hospitalization, Other)
  Sender: NOVO NORDISK
  Company Number: CN-NOVOPROD-1499952

PATIENT
  Age: 69 Year
  Sex: Female
  Weight: 54.8 kg

DRUGS (11)
  1. NOVORAPID [Suspect]
     Active Substance: INSULIN ASPART
     Indication: Type 2 diabetes mellitus
     Dosage: 20 IU, BID
     Route: 058
     Dates: start: 20250606, end: 20250627
  2. NOVORAPID [Suspect]
     Active Substance: INSULIN ASPART
     Dosage: 20 IU, BID
     Route: 058
     Dates: start: 20250628, end: 20250704
  3. NOVORAPID [Suspect]
     Active Substance: INSULIN ASPART
     Dosage: 18 IU, QD
     Route: 058
     Dates: start: 20250704
  4. NOVORAPID [Suspect]
     Active Substance: INSULIN ASPART
     Dosage: 20 IU, QD
     Route: 058
     Dates: start: 20250704
  5. NOVORAPID [Suspect]
     Active Substance: INSULIN ASPART
     Dosage: 38 IU, QD (18 UNITS IN THE MORNING, 20 UNITS IN THE EVENING)
     Route: 058
     Dates: start: 20250705, end: 20250720
  6. NOVORAPID [Suspect]
     Active Substance: INSULIN ASPART
     Dosage: 18 IU, BID
     Route: 058
     Dates: start: 20250721
  7. NOVORAPID [Suspect]
     Active Substance: INSULIN ASPART
     Dosage: 16 IU, QD (IN MORNING)
     Route: 058
     Dates: start: 20250724
  8. NOVORAPID [Suspect]
     Active Substance: INSULIN ASPART
     Dosage: 34 IU, QD (16 UNITS IN THE MORNING, 18 UNITS IN THE EVENING)
     Route: 058
     Dates: start: 20250722, end: 20250723
  9. METFORMIN HYDROCHLORIDE [Concomitant]
     Active Substance: METFORMIN HYDROCHLORIDE
     Indication: Type 2 diabetes mellitus
     Dosage: 0.5 G, BID
     Route: 048
     Dates: start: 202502
  10. ACARBOSE [Concomitant]
     Active Substance: ACARBOSE
     Indication: Type 2 diabetes mellitus
     Dosage: 50 MG, QD
     Route: 048
     Dates: start: 2024
  11. AMLODIPINE BESYLATE [Concomitant]
     Active Substance: AMLODIPINE BESYLATE
     Indication: Hypertension
     Dosage: 5 MG, QD
     Route: 048
     Dates: start: 2024

REACTIONS (2)
  - Atrial fibrillation [Recovered/Resolved]
  - Hypoglycaemia [Unknown]

NARRATIVE: CASE EVENT DATE: 20250718
